FAERS Safety Report 7687459-1 (Version None)
Quarter: 2011Q3

REPORT INFORMATION
  Report Type: 
  Country: None (occurrence: None)
  Receive Date: 20110816
  Receipt Date: 20110810
  Transmission Date: 20111222
  Serious: Yes (Other)
  Sender: FDA-Public Use
  Company Number: GB-SANOFI-AVENTIS-2011SA051710

PATIENT
  Sex: Female

DRUGS (3)
  1. HUMALOG [Concomitant]
  2. INSULIN PEN NOS [Concomitant]
  3. LANTUS [Suspect]
     Indication: DIABETES MELLITUS

REACTIONS (5)
  - VISUAL IMPAIRMENT [None]
  - MALAISE [None]
  - SLEEP APNOEA SYNDROME [None]
  - MEDICATION ERROR [None]
  - HYPERTENSION [None]
